FAERS Safety Report 14233980 (Version 1)
Quarter: 2017Q4

REPORT INFORMATION
  Report Type: Report from Study
  Country: CN (occurrence: CN)
  Receive Date: 20171128
  Receipt Date: 20171128
  Transmission Date: 20180321
  Serious: Yes (Hospitalization)
  Sender: FDA-Public Use
  Company Number: CN-TAKEDA-2017TUS024539

PATIENT
  Age: 32 Year
  Sex: Male
  Weight: 80 kg

DRUGS (1)
  1. FEBUXOSTAT. [Suspect]
     Active Substance: FEBUXOSTAT
     Indication: HYPERURICAEMIA
     Dosage: 40 MG, QD
     Route: 048
     Dates: start: 20140103

REACTIONS (1)
  - Abscess limb [Recovered/Resolved]

NARRATIVE: CASE EVENT DATE: 20140106
